FAERS Safety Report 8600677 (Version 2)
Quarter: 2013Q1

REPORT INFORMATION
  Report Type: Spontaneous
  Country: FR (occurrence: None)
  Receive Date: 20120529
  Receipt Date: 20121207
  Transmission Date: 20140127
  Serious: Yes (Other)
  Sender: FDA-Public Use
  Company Number: UCM201205-000045

PATIENT
  Age: 44 Year
  Sex: Male

DRUGS (4)
  1. BISOPROLOL FUMARATE [Suspect]
  2. NEBIVOLOL [Suspect]
  3. PAROXETINE [Suspect]
     Dosage: 20 MG PER DAY
  4. METHADONE HYDROCHLORIDE [Suspect]
     Dosage: 160 MG PER DAY, 250 MG

REACTIONS (4)
  - Bradycardia [None]
  - Ventricular tachycardia [None]
  - Syncope [None]
  - Torsade de pointes [None]
